FAERS Safety Report 17796707 (Version 2)
Quarter: 2020Q2

REPORT INFORMATION
  Report Type: Report from Study
  Country: None (occurrence: CL)
  Receive Date: 20200518
  Receipt Date: 20200612
  Transmission Date: 20200714
  Serious: Yes (Other)
  Sender: FDA-Public Use
  Company Number: CL-ABBVIE-20K-034-3401938-00

PATIENT
  Age: 51 Year
  Sex: Female

DRUGS (6)
  1. METHOTREXATE. [Concomitant]
     Active Substance: METHOTREXATE
     Indication: JUVENILE IDIOPATHIC ARTHRITIS
  2. PARACETAMOL [Concomitant]
     Active Substance: ACETAMINOPHEN
     Indication: JUVENILE IDIOPATHIC ARTHRITIS
  3. HUMIRA [Suspect]
     Active Substance: ADALIMUMAB
     Indication: JUVENILE IDIOPATHIC ARTHRITIS
     Route: 058
     Dates: start: 20190820
  4. CELEBRA [Concomitant]
     Active Substance: CELECOXIB
     Indication: JUVENILE IDIOPATHIC ARTHRITIS
  5. TRAMADOL. [Concomitant]
     Active Substance: TRAMADOL
     Indication: JUVENILE IDIOPATHIC ARTHRITIS
  6. MEDROL [Concomitant]
     Active Substance: METHYLPREDNISOLONE
     Indication: JUVENILE IDIOPATHIC ARTHRITIS

REACTIONS (12)
  - Urine abnormality [Unknown]
  - Urinary tract infection [Not Recovered/Not Resolved]
  - Discomfort [Unknown]
  - Vision blurred [Not Recovered/Not Resolved]
  - Neck pain [Not Recovered/Not Resolved]
  - Dizziness [Not Recovered/Not Resolved]
  - Fall [Recovering/Resolving]
  - Post concussion syndrome [Unknown]
  - Epistaxis [Unknown]
  - Loss of consciousness [Unknown]
  - Headache [Unknown]
  - Neck injury [Not Recovered/Not Resolved]

NARRATIVE: CASE EVENT DATE: 20200507
